FAERS Safety Report 7734672-0 (Version None)
Quarter: 2011Q3

REPORT INFORMATION
  Report Type: 
  Country: None (occurrence: None)
  Receive Date: 20110907
  Receipt Date: 20110830
  Transmission Date: 20111222
  Serious: Yes (Other)
  Sender: FDA-Public Use
  Company Number: FR-MERCK-1109USA00168

PATIENT
  Age: 46 Year
  Sex: Female

DRUGS (13)
  1. CLONAZEPAM [Concomitant]
     Dosage: 3/4 DF DAILY
     Route: 065
  2. FERROUS SULFATE TAB [Concomitant]
     Route: 065
  3. NEULEPTIL [Concomitant]
     Route: 065
  4. ISENTRESS [Suspect]
     Route: 048
     Dates: start: 20070401
  5. DEPAKENE [Suspect]
     Route: 048
     Dates: start: 20070101
  6. PREZISTA [Suspect]
     Route: 048
     Dates: start: 20070401
  7. VALACYCLOVIR HYDROCHLORIDE [Concomitant]
     Route: 065
     Dates: start: 20060101
  8. NORVIR [Suspect]
     Route: 048
     Dates: start: 20070401
  9. VFEND [Suspect]
     Route: 048
     Dates: start: 20060621, end: 20110211
  10. TRILEPTAL [Concomitant]
     Route: 048
     Dates: start: 20061101
  11. TRUVADA [Suspect]
     Route: 048
     Dates: start: 20070101
  12. SPECIAFOLDINE [Concomitant]
     Dosage: 0.4 L DAILY
     Route: 065
  13. DITROPAN [Concomitant]
     Route: 065

REACTIONS (1)
  - PSEUDOEPITHELIOMATOUS HYPERPLASIA [None]
